FAERS Safety Report 21395052 (Version 1)
Quarter: 2022Q3

REPORT INFORMATION
  Report Type: Spontaneous
  Country: DE (occurrence: DE)
  Receive Date: 20220930
  Receipt Date: 20220930
  Transmission Date: 20221027
  Serious: Yes (Hospitalization)
  Sender: FDA-Public Use
  Company Number: DE-NOVARTISPH-NVSC2022DE217377

PATIENT
  Age: 59 Year
  Sex: Male
  Weight: 93 kg

DRUGS (10)
  1. TICAGRELOR [Suspect]
     Active Substance: TICAGRELOR
     Indication: Product used for unknown indication
     Dosage: 90 MG, BID, 1-0-1-0, TABLETTEN
     Route: 048
  2. ASPIRIN [Suspect]
     Active Substance: ASPIRIN
     Indication: Product used for unknown indication
     Dosage: 100 MG, QD,  0-1-0-0, TABLETTEN
     Route: 048
  3. RAMIPRIL [Concomitant]
     Active Substance: RAMIPRIL
     Indication: Product used for unknown indication
     Dosage: 5 MG, QD, 1-0-0-0, TABLETTEN
     Route: 048
  4. INSULIN GLULISINE [Concomitant]
     Active Substance: INSULIN GLULISINE
     Indication: Product used for unknown indication
     Dosage: 1 IE, NACH BZ, INJEKTIONS-/INFUSIONSL?SUNG
     Route: 058
  5. EMPAGLIFLOZIN [Concomitant]
     Active Substance: EMPAGLIFLOZIN
     Indication: Product used for unknown indication
     Dosage: 10 MG, QD, 1-0-0-0, TABLETTEN
     Route: 048
  6. METOPROLOL [Concomitant]
     Active Substance: METOPROLOL
     Indication: Product used for unknown indication
     Dosage: 47.5 MG, QD, 2-0-0-0, RETARD-TABLETTEN
     Route: 048
  7. INSULIN DETEMIR [Concomitant]
     Active Substance: INSULIN DETEMIR
     Indication: Product used for unknown indication
     Dosage: 1 IE, 0-0-0-8, INJEKTIONS-/INFUSIONSL?SUNG
     Route: 058
  8. ROSUVASTATIN [Concomitant]
     Active Substance: ROSUVASTATIN
     Indication: Product used for unknown indication
     Dosage: 20 MG, QD,  0-0-1-0, TABLETTEN
     Route: 048
  9. METFORMIN [Concomitant]
     Active Substance: METFORMIN HYDROCHLORIDE
     Indication: Product used for unknown indication
     Dosage: 1000 MG, BID, 1-0-1-0, TABLETTEN
     Route: 048
  10. EZETIMIBE [Concomitant]
     Active Substance: EZETIMIBE
     Indication: Product used for unknown indication
     Dosage: 10 MG, QD, 1-0-0-0, TABLETTEN
     Route: 048

REACTIONS (9)
  - Abdominal pain [Unknown]
  - Dyspnoea exertional [Unknown]
  - Microcytic anaemia [Unknown]
  - Abdominal pain upper [Unknown]
  - Faeces discoloured [Unknown]
  - Fatigue [Unknown]
  - Dizziness [Unknown]
  - Muscular weakness [Unknown]
  - Hyperhidrosis [Unknown]
